FAERS Safety Report 6060581-1 (Version None)
Quarter: 2009Q1

REPORT INFORMATION
  Report Type: 
  Country: None (occurrence: None)
  Receive Date: 20090202
  Receipt Date: 20090122
  Transmission Date: 20090719
  Serious: Yes (Hospitalization)
  Sender: FDA-Public Use
  Company Number: AT-BRISTOL-MYERS SQUIBB COMPANY-14480537

PATIENT
  Age: 55 Year
  Sex: Male

DRUGS (9)
  1. CYCLOPHOSPHAMIDE [Suspect]
  2. VINCRISTINE SULFATE [Suspect]
  3. BLEOMYCIN SULFATE [Suspect]
  4. DOXORUBICIN HCL [Suspect]
  5. PREDNISOLONE [Suspect]
  6. RITUXIMAB [Suspect]
  7. VINDESINE [Suspect]
  8. METHOTREXATE [Suspect]
  9. RADIATION THERAPY [Suspect]

REACTIONS (1)
  - PROGRESSIVE MULTIFOCAL LEUKOENCEPHALOPATHY [None]
